FAERS Safety Report 16465614 (Version 1)
Quarter: 2019Q2

REPORT INFORMATION
  Report Type: Spontaneous
  Country: US (occurrence: US)
  Receive Date: 20190621
  Receipt Date: 20190621
  Transmission Date: 20190711
  Serious: Yes (Other)
  Sender: FDA-Public Use
  Company Number: PHHY2019US142390

PATIENT
  Age: 42 Year
  Sex: Female

DRUGS (1)
  1. HYDROXYCHLOROQUINE [Suspect]
     Active Substance: HYDROXYCHLOROQUINE
     Indication: SYSTEMIC LUPUS ERYTHEMATOSUS
     Dosage: 400 MG (5.4 MG/KG)
     Route: 065
     Dates: start: 2008

REACTIONS (5)
  - Dyspnoea [Unknown]
  - Cardiotoxicity [Unknown]
  - Skin hyperpigmentation [Unknown]
  - Cardiac failure acute [Unknown]
  - Hypertensive cardiomyopathy [Unknown]
